FAERS Safety Report 15494064 (Version 1)
Quarter: 2018Q4

REPORT INFORMATION
  Report Type: Spontaneous
  Country: US (occurrence: US)
  Receive Date: 20181004
  Receipt Date: 20181004
  Transmission Date: 20190205
  Serious: Yes (Hospitalization)
  Sender: FDA-Public Use
  Company Number: None

PATIENT
  Age: 76 Year
  Sex: Female
  Weight: 81.19 kg

DRUGS (1)
  1. VERZENIO [Suspect]
     Active Substance: ABEMACICLIB
     Indication: BREAST CANCER
     Route: 048
     Dates: start: 20180808, end: 20180905

REACTIONS (4)
  - Diarrhoea [None]
  - Atrial fibrillation [None]
  - Blood magnesium decreased [None]
  - Product outer packaging issue [None]

NARRATIVE: CASE EVENT DATE: 20180905
